FAERS Safety Report 5342287-7 (Version None)
Quarter: 2007Q2

REPORT INFORMATION
  Report Type: 
  Country: None (occurrence: None)
  Receive Date: 20070601
  Receipt Date: 20070529
  Transmission Date: 20071010
  Serious: Yes (Other)
  Sender: FDA-Public Use
  Company Number: BR-JNJFOC-20070507101

PATIENT
  Age: 28 Year
  Sex: Female
  Weight: 80 kg

DRUGS (1)
  1. HALDOL [Suspect]
     Indication: SEDATION
     Route: 048

REACTIONS (2)
  - ABNORMAL BEHAVIOUR [None]
  - MUTISM [None]
